FAERS Safety Report 7418903 (Version 3)
Quarter: 2013Q1

REPORT INFORMATION
  Report Type: Spontaneous
  Country: US (occurrence: US)
  Receive Date: 20100614
  Receipt Date: 20130325
  Transmission Date: 20140127
  Serious: Yes (Death, Other)
  Sender: FDA-Public Use
  Company Number: US-PFIZER INC-2010073304

PATIENT
  Age: 47 Year
  Sex: Female

DRUGS (9)
  1. SERTRALINE HCL [Suspect]
     Dosage: UNK
  2. FLUOXETINE HCL [Suspect]
     Dosage: UNK
  3. THOMBRAN [Suspect]
     Dosage: UNK
  4. OXYMORPHONE [Suspect]
     Dosage: UNK
  5. METAMFETAMINE [Suspect]
     Dosage: UNK
  6. BUPROPION [Suspect]
     Dosage: UNK
  7. TRIMETHOPRIM [Suspect]
     Dosage: UNK
  8. CHLORPHENIRAMINE [Suspect]
     Dosage: UNK
  9. AMPHETAMINE [Suspect]
     Dosage: UNK
     Route: 065

REACTIONS (3)
  - Toxicity to various agents [Fatal]
  - Drug abuse [Fatal]
  - Pulmonary congestion [Unknown]
